FAERS Safety Report 6165705-3 (Version None)
Quarter: 2009Q2

REPORT INFORMATION
  Report Type: 
  Country: None (occurrence: None)
  Receive Date: 20090423
  Receipt Date: 20090411
  Transmission Date: 20091009
  Serious: Yes (Hospitalization, Other)
  Sender: FDA-Public Use
  Company Number: US-PFIZER INC-2009192371

PATIENT
  Sex: Female
  Weight: 45.351 kg

DRUGS (23)
  1. CHANTIX [Suspect]
     Indication: SMOKING CESSATION THERAPY
     Dosage: 0.5 MG, 1X/DAY
     Route: 048
     Dates: start: 20090327, end: 20090401
  2. SYNTHROID [Concomitant]
     Dosage: UNK
     Route: 048
  3. SYNTHROID [Concomitant]
     Dosage: UNK
  4. REDON [Concomitant]
     Dosage: UNK
     Route: 048
  5. ALLEGRA [Concomitant]
     Dosage: UNK
     Route: 048
  6. ALLEGRA [Concomitant]
     Route: 048
  7. PROTONIX [Concomitant]
     Dosage: UNK
     Route: 048
  8. PROTONIX [Concomitant]
     Route: 048
  9. PROLACTIN [Concomitant]
     Dosage: UNK
     Route: 048
  10. PROLACTIN [Concomitant]
     Route: 048
  11. ZOFRAN [Concomitant]
     Dosage: UNK
     Route: 048
  12. ZOFRAN [Concomitant]
     Route: 048
  13. CARAFATE [Concomitant]
     Dosage: UNK
     Route: 048
  14. CARAFATE [Concomitant]
     Route: 048
  15. NYSTATIN [Concomitant]
     Dosage: UNK
     Route: 048
  16. NYSTATIN [Concomitant]
     Route: 048
  17. CALCIUM [Concomitant]
     Dosage: UNK
     Route: 048
  18. CALCIUM [Concomitant]
     Route: 048
  19. MULTI-VITAMINS [Concomitant]
     Dosage: UNK
     Route: 048
  20. MULTI-VITAMINS [Concomitant]
     Route: 048
  21. OXYCODONE [Concomitant]
     Dosage: UNK
     Route: 048
  22. OXYCODONE [Concomitant]
     Route: 048
  23. PENTOIL [Concomitant]
     Dosage: UNK
     Route: 048

REACTIONS (2)
  - HOMICIDAL IDEATION [None]
  - INTESTINAL PROLAPSE [None]
